FAERS Safety Report 5420728-4 (Version None)
Quarter: 2007Q3

REPORT INFORMATION
  Report Type: 
  Country: None (occurrence: None)
  Receive Date: 20070821
  Receipt Date: 20070809
  Transmission Date: 20080115
  Serious: Yes (Other)
  Sender: FDA-Public Use
  Company Number: US-AVENTIS-200713124US

PATIENT
  Sex: Male

DRUGS (3)
  1. KETEK [Suspect]
     Indication: BRONCHITIS
     Dosage: DOSE: UNK
     Route: 048
     Dates: start: 20050201
  2. KETEK [Suspect]
     Dosage: DOSE: UNK
     Route: 048
     Dates: start: 20050401
  3. PREDNISONE [Concomitant]
     Dosage: DOSE: UNK

REACTIONS (13)
  - ASTHENIA [None]
  - CHEST DISCOMFORT [None]
  - CHEST PAIN [None]
  - DYSPNOEA [None]
  - FATIGUE [None]
  - HEPATIC ENZYME INCREASED [None]
  - HEPATITIS [None]
  - HYPERHIDROSIS [None]
  - JAUNDICE [None]
  - LETHARGY [None]
  - NAUSEA [None]
  - PYREXIA [None]
  - VOMITING [None]
